FAERS Safety Report 9429127 (Version 3)
Quarter: 2013Q4

REPORT INFORMATION
  Report Type: Spontaneous
  Country: US (occurrence: US)
  Receive Date: 20130730
  Receipt Date: 20131003
  Transmission Date: 20140711
  Serious: Yes (Other)
  Sender: FDA-Public Use
  Company Number: US-BAYER-2013-090323

PATIENT
  Sex: Female

DRUGS (7)
  1. BETASERON [Suspect]
     Indication: RELAPSING-REMITTING MULTIPLE SCLEROSIS
     Dosage: UNK
     Dates: start: 2007
  2. SYNTHROID [Concomitant]
  3. DOSTINEX [Concomitant]
     Indication: PITUITARY TUMOUR BENIGN
  4. VITAMIN C [ASCORBIC ACID] [Concomitant]
  5. VITAMIN D NOS [Concomitant]
  6. TYLENOL [PARACETAMOL] [Concomitant]
  7. TOPAMAX [Concomitant]
     Indication: HEADACHE
     Dosage: 50 MG, UNK

REACTIONS (3)
  - White blood cell count decreased [None]
  - Burning sensation [Not Recovered/Not Resolved]
  - Dysaesthesia [Not Recovered/Not Resolved]
